FAERS Safety Report 16138718 (Version 3)
Quarter: 2019Q2

REPORT INFORMATION
  Report Type: Spontaneous
  Country: GR (occurrence: GR)
  Receive Date: 20190401
  Receipt Date: 20190419
  Transmission Date: 20190711
  Serious: Yes (Hospitalization, Other)
  Sender: FDA-Public Use
  Company Number: GR-SA-2019SA082197

PATIENT
  Age: 53 Year
  Sex: Male

DRUGS (2)
  1. OXALIPLATIN. [Suspect]
     Active Substance: OXALIPLATIN
     Indication: ADENOCARCINOMA
     Dosage: 130 MG/M2, QCY
     Route: 042
     Dates: start: 20170306, end: 20170317
  2. CAPECITABINE. [Suspect]
     Active Substance: CAPECITABINE
     Indication: ADENOCARCINOMA
     Dosage: UNK UNK, QCY
     Route: 065

REACTIONS (8)
  - Hiccups [Recovered/Resolved]
  - Gastrointestinal stoma complication [Recovered/Resolved]
  - Nausea [Recovered/Resolved]
  - Cough [Recovered/Resolved]
  - Blood creatinine increased [Recovered/Resolved]
  - Dysphagia [Recovered/Resolved]
  - Toxicity to various agents [Recovered/Resolved]
  - Electrolyte imbalance [Recovered/Resolved]

NARRATIVE: CASE EVENT DATE: 20170317
